FAERS Safety Report 9203893 (Version 1)
Quarter: 2013Q1

REPORT INFORMATION
  Report Type: Spontaneous
  Country: US (occurrence: None)
  Receive Date: 20120709
  Receipt Date: 20120709
  Transmission Date: 20140127
  Serious: No
  Sender: FDA-Public Use
  Company Number: 2012HGS-003534

PATIENT
  Age: 65 Year
  Sex: Female
  Weight: 83.46 kg

DRUGS (21)
  1. BENLYSTA [Suspect]
     Indication: SYSTEMIC LUPUS ERYTHEMATOSUS
     Dosage: 1 IN 28 D
     Route: 041
  2. CELLCEPT (MYCOPHENOLATE MOFETIL) (MYCOPHENOLATE MOFETIL) [Concomitant]
  3. PLAQUENIL (HYDROXYCHLOROQUINE PHOSPHATE) (HYDROXYCHLOROQUINE PHOSPHATE) [Concomitant]
  4. METOPROLOL (METOPROLOL) (METOPROLOL) [Concomitant]
  5. SYNTHROID (LEVOTHYROXINE SODIUM) (LEVOTHYROXINE SODIUM) [Concomitant]
  6. MINOCYCLINE (MINOCYCLINE) (MINOCYCLINE) [Concomitant]
  7. CLOBETASOL (CLOBETASOL) (CLOBETASOL) [Concomitant]
  8. MOBIC (MELOXICAM) (MELOXICAM) [Concomitant]
  9. OMEPRAZOLE (OMEPRAZOLE) (OMEPRAZOLE) [Concomitant]
  10. ASPIRIN (ACETYLSALICYLIC (ACETYLSALICYLIC ACID) [Concomitant]
  11. SINGULAIR [Concomitant]
  12. LASIX (FUROSEMIDE) (FUROSEMIDE) [Concomitant]
  13. CEREFOLIN (CEREFOLIN NAC) (PYRIDOXINE, CYANOCOBALAMIN, RIBOFLAVIN, CALCIUM MEFOLINATE) [Concomitant]
  14. FERROUS SULFATE (FERROUS SULFATE) (FERROUS SULFATE) [Concomitant]
  15. DEXILANT (DEXLANSOPRAZOLE) (DEXLANSOPRAZOLE) [Concomitant]
  16. CYMBALTA (DULOXETINE HYDROCHLORIDE) (DULOXETINE HYDROCHLORIDE) [Concomitant]
  17. VITAMIN D (ERGOCALCIFEROL) (ERGOCALCIFEROL) [Concomitant]
  18. FLEXERIL (CYCLOBENZAPRINE HYDROCHLORIDE) (CYCLOBENZAPRINE HYDROCHLORIDE) [Concomitant]
  19. ZYRTEC (CETIRIZINE HYDROCHLORIDE) (CETIRIZINE HYDROCHLORIDE) [Concomitant]
  20. OCUVITE (OCUVITE /01053801/) (ASCORBIC ACID, TOCOPHEROL, RETINOL) [Concomitant]
  21. ESTROGEN REPLACEMENT THERAPY (ESTROGEN NOS) (ESTROGEN NOS) [Concomitant]

REACTIONS (1)
  - Stomatitis [None]
